FAERS Safety Report 5364206-X (Version None)
Quarter: 2007Q2

REPORT INFORMATION
  Report Type: 
  Country: None (occurrence: None)
  Receive Date: 20070620
  Receipt Date: 20070612
  Transmission Date: 20071010
  Serious: Yes (Hospitalization, Other)
  Sender: FDA-Public Use
  Company Number: US-PFIZER INC-2007048608

PATIENT
  Age: 64 Year
  Sex: Male

DRUGS (1)
  1. CAMPTOSAR [Suspect]

REACTIONS (2)
  - DIARRHOEA [None]
  - UNEVALUABLE EVENT [None]
